FAERS Safety Report 12411786 (Version 1)
Quarter: 2016Q2

REPORT INFORMATION
  Report Type: Spontaneous
  Country: US (occurrence: None)
  Receive Date: 20160526
  Receipt Date: 20160526
  Transmission Date: 20160815
  Serious: No
  Sender: FDA-Public Use
  Company Number: None

PATIENT
  Age: 52 Year
  Sex: Female

DRUGS (1)
  1. EXEMESTANE TAB 25MG [Suspect]
     Active Substance: EXEMESTANE

REACTIONS (3)
  - Diarrhoea [None]
  - Fatigue [None]
  - Gastric infection [None]

NARRATIVE: CASE EVENT DATE: 20160525
